FAERS Safety Report 10157378 (Version 1)
Quarter: 2014Q2

REPORT INFORMATION
  Report Type: Other
  Country: CO (occurrence: CO)
  Receive Date: 20140507
  Receipt Date: 20140507
  Transmission Date: 20141212
  Serious: Yes (Hospitalization, Other)
  Sender: FDA-Public Use
  Company Number: CO-SHIRE-CO201401976

PATIENT
  Age: 17 Year
  Sex: Male
  Weight: 31 kg

DRUGS (1)
  1. ELAPRASE [Suspect]
     Indication: MUCOPOLYSACCHARIDOSIS II
     Dosage: 18 MG (3 VIALS OF 6 MG), OTHER (EVERY 8 DAYS)
     Route: 041

REACTIONS (3)
  - Respiratory tract congestion [Not Recovered/Not Resolved]
  - Nervous system disorder [Not Recovered/Not Resolved]
  - Disease progression [Not Recovered/Not Resolved]
